FAERS Safety Report 5827203-3 (Version None)
Quarter: 2008Q3

REPORT INFORMATION
  Report Type: 
  Country: None (occurrence: None)
  Receive Date: 20080725
  Receipt Date: 20080718
  Transmission Date: 20090109
  Serious: Yes (Death)
  Sender: FDA-Public Use
  Company Number: US024158

PATIENT
  Age: 82 Year
  Weight: 85 kg

DRUGS (2)
  1. TRISENOX [Suspect]
     Indication: ACUTE PROMYELOCYTIC LEUKAEMIA
     Dosage: 12.75 UG DAILY INTRAVENOUS DRIP
     Route: 041
     Dates: start: 20080625, end: 20080707
  2. IDARUBICIN HCL [Suspect]
     Indication: ACUTE PROMYELOCYTIC LEUKAEMIA
     Dosage: 9 MG/M2 DAILY INTRAVENOUS
     Route: 042
     Dates: start: 20080625, end: 20080707

REACTIONS (2)
  - APLASIA [None]
  - SEPTIC SHOCK [None]
